FAERS Safety Report 7261623-8 (Version None)
Quarter: 2011Q1

REPORT INFORMATION
  Report Type: 
  Country: None (occurrence: None)
  Receive Date: 20110130
  Receipt Date: 20101102
  Transmission Date: 20110831
  Serious: No
  Sender: FDA-Public Use
  Company Number: US-ABBOTT-10P-163-0682889-00

PATIENT
  Sex: Male

DRUGS (5)
  1. LITHIUM [Concomitant]
     Indication: PRODUCT USED FOR UNKNOWN INDICATION
     Route: 048
  2. HUMIRA [Suspect]
     Dosage: 80MG DAY 15
  3. HUMIRA [Suspect]
     Indication: CROHN'S DISEASE
     Dosage: 160 MG DAY 1 SQ, 80 MG DAY 15, 40 MG DAY 29
     Route: 058
     Dates: start: 20100930, end: 20100930
  4. HUMIRA [Suspect]
     Dosage: 40MG DAY 29; THEN 40MG QOW
  5. LIALDA [Concomitant]
     Indication: PRODUCT USED FOR UNKNOWN INDICATION
     Route: 048

REACTIONS (1)
  - PAIN IN EXTREMITY [None]
